FAERS Safety Report 12237108 (Version 1)
Quarter: 2016Q2

REPORT INFORMATION
  Report Type: Other
  Country: UA (occurrence: UA)
  Receive Date: 20160405
  Receipt Date: 20160405
  Transmission Date: 20160815
  Serious: Yes (Hospitalization)
  Sender: FDA-Public Use
  Company Number: UA-CIPLA LTD.-2016UA03244

PATIENT

DRUGS (7)
  1. LAMIVUDINE/ZIDOVUDINE [Suspect]
     Active Substance: LAMIVUDINE\ZIDOVUDINE
     Indication: HIV INFECTION CDC GROUP IV SUBGROUP E
     Dosage: 1 TABLET, TWO TIMES A DAY
     Route: 048
     Dates: start: 20081017
  2. HEPTRAL [Suspect]
     Active Substance: ADEMETIONINE
     Dosage: UNK
     Route: 065
  3. DALACIN [Suspect]
     Active Substance: CLINDAMYCIN\CLINDAMYCIN PHOSPHATE
     Dosage: UNK
     Route: 065
  4. ETHAMBUTOL [Suspect]
     Active Substance: ETHAMBUTOL HYDROCHLORIDE
     Dosage: UNK
     Route: 065
  5. EFAVIRENZ [Suspect]
     Active Substance: EFAVIRENZ
     Indication: HIV INFECTION CDC GROUP IV SUBGROUP E
     Dosage: 600 MG, QD
     Route: 048
     Dates: start: 20081017
  6. ISONIAZIDUM [Suspect]
     Active Substance: ISONIAZID
     Dosage: UNK
     Route: 065
  7. AMOKSIKLAV [Suspect]
     Active Substance: AMOXICILLIN\CLAVULANATE POTASSIUM
     Dosage: UNK
     Route: 065

REACTIONS (1)
  - Anaemia [Recovering/Resolving]

NARRATIVE: CASE EVENT DATE: 20090217
